FAERS Safety Report 11719601 (Version 1)
Quarter: 2015Q4

REPORT INFORMATION
  Report Type: Spontaneous
  Country: US (occurrence: US)
  Receive Date: 20151110
  Receipt Date: 20151110
  Transmission Date: 20160304
  Serious: No
  Sender: FDA-Public Use
  Company Number: US-CTI_01751_2015

PATIENT
  Sex: Female

DRUGS (4)
  1. VITAMAX [Concomitant]
     Dosage: DF
  2. BETHKIS [Suspect]
     Active Substance: TOBRAMYCIN
     Indication: CYSTIC FIBROSIS
     Dosage: 300 MG/ 4 ML, BID
     Route: 055
     Dates: start: 20150601, end: 20150701
  3. VENTOLIN [Concomitant]
     Active Substance: ALBUTEROL SULFATE
     Dosage: DF
  4. FLOVENT [Concomitant]
     Active Substance: FLUTICASONE PROPIONATE
     Dosage: DF

REACTIONS (1)
  - Drug prescribing error [Unknown]
